FAERS Safety Report 10461577 (Version 3)
Quarter: 2014Q3

REPORT INFORMATION
  Report Type: Spontaneous
  Country: DE (occurrence: DE)
  Receive Date: 20140918
  Receipt Date: 20140923
  Transmission Date: 20150326
  Serious: Yes (Other)
  Sender: FDA-Public Use
  Company Number: DE-AMGEN-DEUSP2014055652

PATIENT
  Age: 94 Year
  Sex: Male
  Weight: 82.5 kg

DRUGS (5)
  1. ACTONEL [Concomitant]
     Active Substance: RISEDRONATE SODIUM
  2. PROLIA [Suspect]
     Active Substance: DENOSUMAB
     Indication: RENAL FAILURE
  3. CALCIUM +D                         /00944201/ [Concomitant]
     Active Substance: CALCIUM\VITAMIN D
  4. PROLIA [Suspect]
     Active Substance: DENOSUMAB
     Indication: PROSTATE CANCER
     Dosage: 60 MG, Q6MO
     Route: 058
     Dates: start: 20110404
  5. DEKRISTOL [Concomitant]
     Active Substance: CHOLECALCIFEROL
     Dosage: 20000 IU,(1X1/WEEKX3) UNK

REACTIONS (22)
  - Myalgia [Unknown]
  - Petechiae [Unknown]
  - Restlessness [Unknown]
  - Haematoma [Unknown]
  - Fractured sacrum [Unknown]
  - Malaise [Unknown]
  - Skin reaction [Recovered/Resolved]
  - Osteochondrosis [Unknown]
  - Blood thyroid stimulating hormone decreased [Unknown]
  - Hypersensitivity [Unknown]
  - Arthropathy [Unknown]
  - Drug eruption [Unknown]
  - Body height decreased [Unknown]
  - Spinal pain [Unknown]
  - Back pain [Unknown]
  - Anxiety disorder [Unknown]
  - Stress fracture [Unknown]
  - Rash generalised [Recovered/Resolved]
  - Vitamin D deficiency [Unknown]
  - Blood parathyroid hormone increased [Not Recovered/Not Resolved]
  - Weight decreased [Unknown]
  - Dermatitis allergic [Unknown]

NARRATIVE: CASE EVENT DATE: 20130314
